FAERS Safety Report 5678374-3 (Version None)
Quarter: 2008Q1

REPORT INFORMATION
  Report Type: 
  Country: None (occurrence: None)
  Receive Date: 20080320
  Receipt Date: 20080310
  Transmission Date: 20080703
  Serious: No
  Sender: FDA-Public Use
  Company Number: PIR# 0801032C

PATIENT
  Age: 48 Year
  Sex: Female

DRUGS (1)
  1. BSS [Suspect]
     Indication: EYE LASER SURGERY

REACTIONS (1)
  - PHARMACEUTICAL PRODUCT COMPLAINT [None]
